FAERS Safety Report 4881340-9 (Version None)
Quarter: 2005Q4

REPORT INFORMATION
  Report Type: 
  Country: None (occurrence: None)
  Receive Date: 20051212
  Receipt Date: 20051103
  Transmission Date: 20060501
  Serious: No
  Sender: FDA-Public Use
  Company Number: 2005-02224

PATIENT
  Age: 75 Year
  Sex: Female

DRUGS (11)
  1. VELCADE [Suspect]
     Indication: MULTIPLE MYELOMA
     Dosage: SEE IMAGE
     Dates: start: 20040629, end: 20040702
  2. VELCADE [Suspect]
     Indication: MULTIPLE MYELOMA
     Dosage: SEE IMAGE
     Dates: start: 20040709, end: 20040730
  3. VELCADE [Suspect]
     Indication: MULTIPLE MYELOMA
     Dosage: SEE IMAGE
     Dates: start: 20040810, end: 20040810
  4. VELCADE [Suspect]
     Indication: MULTIPLE MYELOMA
     Dosage: SEE IMAGE
     Dates: start: 20040813, end: 20040817
  5. LASIX [Concomitant]
  6. COZAAR [Concomitant]
  7. COUMADIN [Concomitant]
  8. TYLENOL ARTHRITIS (PARACETAMOL) [Concomitant]
  9. POTASSIUM (POTASSIUM) [Concomitant]
  10. VITAMIN B12 [Concomitant]
  11. HYDROCODONE BITARTRATE [Concomitant]

REACTIONS (1)
  - PLATELET COUNT DECREASED [None]
